FAERS Safety Report 20412786 (Version 7)
Quarter: 2022Q3

REPORT INFORMATION
  Report Type: Spontaneous
  Country: CA (occurrence: CA)
  Receive Date: 20220201
  Receipt Date: 20220727
  Transmission Date: 20221027
  Serious: Yes (Other)
  Sender: FDA-Public Use
  Company Number: CA-PFIZER INC-202200131134

PATIENT
  Age: 52 Year
  Sex: Female

DRUGS (2)
  1. XELJANZ [Suspect]
     Active Substance: TOFACITINIB CITRATE
     Indication: Rheumatoid arthritis
     Dosage: 5 MG, 2X/DAY
     Route: 048
     Dates: start: 20220127
  2. XELJANZ [Suspect]
     Active Substance: TOFACITINIB CITRATE
     Dosage: 5 MG, 2X/DAY
     Route: 048
     Dates: start: 20220127

REACTIONS (11)
  - Pulmonary hypertension [Unknown]
  - Thyroid disorder [Unknown]
  - Fibromyalgia [Unknown]
  - Polycystic ovaries [Unknown]
  - Malaise [Unknown]
  - Headache [Unknown]
  - Skin lesion [Unknown]
  - Blister [Unknown]
  - Swelling [Unknown]
  - Feeling hot [Unknown]
  - Hypersensitivity [Recovering/Resolving]

NARRATIVE: CASE EVENT DATE: 20220101
